FAERS Safety Report 9302682 (Version 3)
Quarter: 2016Q2

REPORT INFORMATION
  Report Type: Spontaneous
  Country: US (occurrence: US)
  Receive Date: 20130522
  Receipt Date: 20160530
  Transmission Date: 20160815
  Serious: Yes (Hospitalization, Other)
  Sender: FDA-Public Use
  Company Number: US-JNJFOC-20130505652

PATIENT
  Age: 91 Year
  Sex: Female
  Weight: 65.77 kg

DRUGS (3)
  1. RISPERDAL [Suspect]
     Active Substance: RISPERIDONE
     Indication: PROPHYLAXIS
     Route: 065
     Dates: start: 20120419, end: 20120421
  2. PANTOPRAZOLE [Concomitant]
     Active Substance: PANTOPRAZOLE SODIUM
     Route: 048
  3. HYDROCHLOROTHIAZIDE. [Concomitant]
     Active Substance: HYDROCHLOROTHIAZIDE
     Indication: DIURETIC THERAPY
     Route: 048

REACTIONS (10)
  - Dysphagia [Unknown]
  - Respiratory arrest [Recovered/Resolved]
  - Nervous system disorder [Not Recovered/Not Resolved]
  - Seizure [Recovered/Resolved]
  - Cerebral ischaemia [Recovering/Resolving]
  - Cerebrovascular accident [Recovering/Resolving]
  - Abasia [Not Recovered/Not Resolved]
  - Adverse drug reaction [Unknown]
  - Dyskinesia [Unknown]
  - Neuroleptic malignant syndrome [Unknown]

NARRATIVE: CASE EVENT DATE: 201204
